FAERS Safety Report 8415806-1 (Version None)
Quarter: 2012Q2

REPORT INFORMATION
  Report Type: 
  Country: None (occurrence: None)
  Receive Date: 20120323
  Receipt Date: 20111221
  Transmission Date: 20120825
  Serious: Yes (Hospitalization)
  Sender: FDA-Public Use
  Company Number: 163-21880-11123163

PATIENT
  Age: 59 Year
  Sex: Female

DRUGS (2)
  1. REVLIMID [Suspect]
     Indication: MYELODYSPLASTIC SYNDROME
     Dosage: 15 MG, DAILY FOR 21 DAYS, 7 DAYS OFF, PO 5 MG, DAILY FOR 21 DAY, 7 DAYS OFF, PO
     Route: 048
     Dates: start: 20111223
  2. REVLIMID [Suspect]
     Indication: MYELODYSPLASTIC SYNDROME
     Dosage: 15 MG, DAILY FOR 21 DAYS, 7 DAYS OFF, PO 5 MG, DAILY FOR 21 DAY, 7 DAYS OFF, PO
     Route: 048
     Dates: start: 20111207, end: 20111211

REACTIONS (4)
  - DYSPNOEA [None]
  - CHEST PAIN [None]
  - BACK PAIN [None]
  - DIZZINESS [None]
